FAERS Safety Report 22626169 (Version 5)
Quarter: 2023Q4

REPORT INFORMATION
  Report Type: Report from Study
  Country: CO (occurrence: CO)
  Receive Date: 20230621
  Receipt Date: 20231018
  Transmission Date: 20240110
  Serious: Yes (Other)
  Sender: FDA-Public Use
  Company Number: CO-TAKEDA-2019TUS044627

PATIENT
  Age: 75 Year
  Sex: Female
  Weight: 63 kg

DRUGS (4)
  1. VEDOLIZUMAB [Suspect]
     Active Substance: VEDOLIZUMAB
     Indication: Crohn^s disease
     Dosage: 300 MILLIGRAM
     Route: 042
     Dates: start: 20190605
  2. VEDOLIZUMAB [Suspect]
     Active Substance: VEDOLIZUMAB
     Dosage: 300 MILLIGRAM, Q4WEEKS
     Route: 042
  3. VEDOLIZUMAB [Suspect]
     Active Substance: VEDOLIZUMAB
     Dosage: 300 MILLIGRAM
     Route: 042
  4. VEDOLIZUMAB [Suspect]
     Active Substance: VEDOLIZUMAB
     Dosage: 300 MILLIGRAM, Q4WEEKS
     Route: 042

REACTIONS (20)
  - Intestinal ulcer [Unknown]
  - Crohn^s disease [Unknown]
  - Colonoscopy abnormal [Unknown]
  - Hepatitis B antibody positive [Unknown]
  - Drug ineffective [Unknown]
  - Dysphonia [Not Recovered/Not Resolved]
  - Oropharyngeal discomfort [Not Recovered/Not Resolved]
  - Infusion site haematoma [Not Recovered/Not Resolved]
  - Product dose omission issue [Unknown]
  - Feeling hot [Unknown]
  - Vertigo [Unknown]
  - Gastrointestinal inflammation [Unknown]
  - Anxiety [Unknown]
  - Colitis [Unknown]
  - Weight decreased [Unknown]
  - Weight increased [Unknown]
  - Decreased appetite [Unknown]
  - Nasal congestion [Unknown]
  - Nausea [Unknown]
  - Influenza [Not Recovered/Not Resolved]

NARRATIVE: CASE EVENT DATE: 20190717
